FAERS Safety Report 7132893-1 (Version None)
Quarter: 2010Q4

REPORT INFORMATION
  Report Type: 
  Country: None (occurrence: None)
  Receive Date: 20101202
  Receipt Date: 20101127
  Transmission Date: 20110411
  Serious: Yes (Other)
  Sender: FDA-Public Use
  Company Number: US-PFIZER INC-2010158633

PATIENT
  Sex: Female
  Weight: 56.689 kg

DRUGS (1)
  1. GEODON [Suspect]
     Indication: BIPOLAR DISORDER
     Dosage: 20 MG, 2X/DAY
     Route: 048
     Dates: start: 20100929

REACTIONS (5)
  - ABDOMINAL DISCOMFORT [None]
  - AKATHISIA [None]
  - RESTLESSNESS [None]
  - RHINORRHOEA [None]
  - VISUAL IMPAIRMENT [None]
